FAERS Safety Report 4529668-6 (Version None)
Quarter: 2004Q4

REPORT INFORMATION
  Report Type: 
  Country: None (occurrence: None)
  Receive Date: 20041202
  Receipt Date: 20041028
  Transmission Date: 20050328
  Serious: No
  Sender: FDA-Public Use
  Company Number: 200420910BWH

PATIENT
  Sex: Male

DRUGS (2)
  1. LEVITRA [Suspect]
  2. PAXZIL CR [Concomitant]

REACTIONS (3)
  - EJACULATION DISORDER [None]
  - HOT FLUSH [None]
  - NASAL CONGESTION [None]
